FAERS Safety Report 11750064 (Version 1)
Quarter: 2015Q4

REPORT INFORMATION
  Report Type: Spontaneous
  Country: US (occurrence: None)
  Receive Date: 20151117
  Receipt Date: 20151117
  Transmission Date: 20160304
  Serious: No
  Sender: FDA-Public Use
  Company Number: None

PATIENT
  Age: 3 Year
  Sex: Male
  Weight: 15.42 kg

DRUGS (2)
  1. POLYETHYLENE GLYCOL 3350 POWDER KREMERIS URBAN PHARMACEUTICAL [Suspect]
     Active Substance: POLYETHYLENE GLYCOL 3350
     Indication: CONSTIPATION
     Route: 048
     Dates: start: 20150722, end: 20151020
  2. FLEX OIL [Concomitant]

REACTIONS (5)
  - Rash [None]
  - Rash erythematous [None]
  - Abnormal behaviour [None]
  - Erythema [None]
  - Anger [None]

NARRATIVE: CASE EVENT DATE: 20151020
